FAERS Safety Report 16905412 (Version 1)
Quarter: 2019Q4

REPORT INFORMATION
  Report Type: Spontaneous
  Country: US (occurrence: US)
  Receive Date: 20191010
  Receipt Date: 20191010
  Transmission Date: 20200122
  Serious: Yes (Hospitalization, Other)
  Sender: FDA-Public Use
  Company Number: US-BRISTOL-MYERS SQUIBB COMPANY-BMS-2019-096443

PATIENT
  Age: 70 Year
  Sex: Male
  Weight: 117.91 kg

DRUGS (1)
  1. ELIQUIS [Suspect]
     Active Substance: APIXABAN
     Indication: EMBOLISM VENOUS
     Dosage: 5 MILLIGRAM, QD
     Route: 048

REACTIONS (2)
  - Cerebrovascular accident [Unknown]
  - Off label use [Unknown]

NARRATIVE: CASE EVENT DATE: 20190925
